FAERS Safety Report 9321847 (Version 1)
Quarter: 2013Q2

REPORT INFORMATION
  Report Type: Spontaneous
  Country: US (occurrence: US)
  Receive Date: 20130531
  Receipt Date: 20130531
  Transmission Date: 20140414
  Serious: No
  Sender: FDA-Public Use
  Company Number: US-ABBOTT-13P-163-1061885-00

PATIENT
  Age: 53 Year
  Sex: Female
  Weight: 80.81 kg

DRUGS (7)
  1. MARINOL [Suspect]
     Indication: NAUSEA
     Dosage: TWO CAPSULES TWICE A DAY
     Dates: start: 200806, end: 20130301
  2. GLEEVEC [Concomitant]
     Indication: LEUKAEMIA
  3. PROTONIX [Concomitant]
     Indication: PRODUCT USED FOR UNKNOWN INDICATION
  4. PEPCID AC [Concomitant]
     Indication: PRODUCT USED FOR UNKNOWN INDICATION
  5. METOPROLOL [Concomitant]
     Indication: ATRIAL FIBRILLATION
  6. LORAZEPAM [Concomitant]
     Indication: ANXIETY
  7. VITAMIN D [Concomitant]
     Indication: PRODUCT USED FOR UNKNOWN INDICATION

REACTIONS (13)
  - Glossodynia [Not Recovered/Not Resolved]
  - Oral discomfort [Not Recovered/Not Resolved]
  - Dry throat [Not Recovered/Not Resolved]
  - Cough [Not Recovered/Not Resolved]
  - Retching [Not Recovered/Not Resolved]
  - Dyspepsia [Not Recovered/Not Resolved]
  - Tremor [Not Recovered/Not Resolved]
  - Asthenia [Not Recovered/Not Resolved]
  - Pyrexia [Not Recovered/Not Resolved]
  - Chills [Not Recovered/Not Resolved]
  - Hot flush [Not Recovered/Not Resolved]
  - Pollakiuria [Not Recovered/Not Resolved]
  - Medication error [Not Recovered/Not Resolved]
